FAERS Safety Report 18744222 (Version 4)
Quarter: 2021Q2

REPORT INFORMATION
  Report Type: Report from Study
  Country: None (occurrence: CA)
  Receive Date: 20210114
  Receipt Date: 20210607
  Transmission Date: 20210717
  Serious: Yes (Hospitalization, Other)
  Sender: FDA-Public Use
  Company Number: CA-ABBVIE-21K-028-3729985-00

PATIENT
  Age: 67 Year
  Sex: Female

DRUGS (2)
  1. RINVOQ [Suspect]
     Active Substance: UPADACITINIB
     Route: 048
     Dates: start: 2021, end: 2021
  2. RINVOQ [Suspect]
     Active Substance: UPADACITINIB
     Indication: RHEUMATOID ARTHRITIS
     Route: 048
     Dates: start: 20201109, end: 20210326

REACTIONS (13)
  - Oedematous kidney [Recovering/Resolving]
  - Decubitus ulcer [Unknown]
  - Fall [Recovered/Resolved]
  - Fall [Unknown]
  - Cerebrovascular accident [Unknown]
  - Blood glucose decreased [Unknown]
  - Wound treatment [Unknown]
  - Pericardial effusion [Unknown]
  - Pleural effusion [Unknown]
  - Hepatomegaly [Recovering/Resolving]
  - Bedridden [Unknown]
  - Fall [Recovered/Resolved]
  - Skin ulcer [Unknown]

NARRATIVE: CASE EVENT DATE: 2021
